FAERS Safety Report 23535576 (Version 7)
Quarter: 2024Q3

REPORT INFORMATION
  Report Type: Spontaneous
  Country: JP (occurrence: JP)
  Receive Date: 20240218
  Receipt Date: 20240705
  Transmission Date: 20241016
  Serious: Yes (Hospitalization)
  Sender: ABBVIE
  Company Number: JP-ABBVIE-5641769

PATIENT
  Age: 18 Year
  Sex: Female
  Weight: 52 kg

DRUGS (13)
  1. RINVOQ [Suspect]
     Active Substance: UPADACITINIB
     Indication: Colitis ulcerative
     Dosage: 15 MILLIGRAM
     Route: 048
     Dates: start: 20240415
  2. RINVOQ [Suspect]
     Active Substance: UPADACITINIB
     Indication: Colitis ulcerative
     Dosage: FORM STRENGTH UNITS: 30 MILLIGRAM
     Route: 048
     Dates: start: 20240401, end: 20240404
  3. RINVOQ [Suspect]
     Active Substance: UPADACITINIB
     Indication: Colitis ulcerative
     Dosage: 45 MILLIGRAM
     Route: 048
     Dates: start: 20231018
  4. RINVOQ [Suspect]
     Active Substance: UPADACITINIB
     Indication: Colitis ulcerative
     Dosage: FORM STRENGTH: 30 MILLIGRAM
     Route: 048
     Dates: start: 20240122, end: 20240317
  5. AUGMENTIN [Suspect]
     Active Substance: AMOXICILLIN\CLAVULANATE POTASSIUM
     Indication: Pneumonia bacterial
     Route: 065
     Dates: start: 20240317, end: 20240318
  6. BIFIDOBACTERIUM LONGUM [Concomitant]
     Active Substance: BIFIDOBACTERIUM LONGUM
     Indication: Colitis ulcerative
     Dosage: TIME INTERVAL: 0.33333333 DAYS: 3 TABLET
     Route: 048
     Dates: start: 20211207
  7. AMOXICILLIN [Suspect]
     Active Substance: AMOXICILLIN
     Indication: Pneumonia bacterial
     Route: 065
     Dates: start: 20240317, end: 20240318
  8. METRONIDAZOLE [Suspect]
     Active Substance: METRONIDAZOLE
     Indication: Pneumonia bacterial
     Dosage: LAST ADMIN DATE: MAR 2024
     Route: 065
     Dates: start: 20240322
  9. FLAGYL [Concomitant]
     Active Substance: METRONIDAZOLE\METRONIDAZOLE HYDROCHLORIDE
     Indication: Pneumonia bacterial
     Route: 048
     Dates: start: 20240325, end: 20240401
  10. LOMERIZINE HYDROCHLORIDE [Concomitant]
     Active Substance: LOMERIZINE HYDROCHLORIDE
     Indication: Migraine
     Dosage: 10 MILLIGRAM
     Route: 048
     Dates: start: 20221208
  11. CLARITHROMYCIN [Concomitant]
     Active Substance: CLARITHROMYCIN
     Indication: Pneumonia bacterial
     Dates: start: 20240409
  12. ALFACALCIDOL [Concomitant]
     Active Substance: ALFACALCIDOL
     Indication: Osteoporosis
     Dosage: 1.0 MICROGRAM
     Route: 048
     Dates: start: 20230724
  13. VANCOMYCIN HYDROCHLORIDE [Concomitant]
     Active Substance: VANCOMYCIN HYDROCHLORIDE
     Indication: Product used for unknown indication

REACTIONS (20)
  - Cytomegalovirus infection [Recovering/Resolving]
  - Haemorrhage subcutaneous [Recovering/Resolving]
  - Alopecia [Recovering/Resolving]
  - Pneumonia bacterial [Recovered/Resolved]
  - Malaise [Unknown]
  - Hypersensitivity [Unknown]
  - C-reactive protein increased [Unknown]
  - Infectious mononucleosis [Recovering/Resolving]
  - Pneumonia bacterial [Recovering/Resolving]
  - Headache [Unknown]
  - Drug eruption [Unknown]
  - Erythema [Unknown]
  - Pruritus [Unknown]
  - Hepatic function abnormal [Unknown]
  - Liver disorder [Unknown]
  - Splenomegaly [Unknown]
  - Hypophagia [Unknown]
  - Epstein-Barr virus infection [Recovering/Resolving]
  - Clostridium difficile colitis [Recovering/Resolving]
  - Feeling abnormal [Unknown]

NARRATIVE: CASE EVENT DATE: 20240122
